FAERS Safety Report 25814295 (Version 1)
Quarter: 2025Q3

REPORT INFORMATION
  Report Type: Spontaneous
  Country: BR (occurrence: BR)
  Receive Date: 20250917
  Receipt Date: 20250917
  Transmission Date: 20251021
  Serious: Yes (Other)
  Sender: MERCK SHARP & DOHME LLC
  Company Number: BR-009507513-2326411

PATIENT
  Sex: Female

DRUGS (3)
  1. HEPATITIS A VACCINE NOS [Suspect]
     Active Substance: HEPATITIS A VACCINE, INACTIVATED
     Indication: Prophylaxis
  2. VARICELLA-ZOSTER VACCINE NOS [Suspect]
     Active Substance: VARICELLA-ZOSTER VACCINE
     Indication: Prophylaxis
  3. STERILE DILUENT (WATER) [Suspect]
     Active Substance: WATER
     Indication: Prophylaxis

REACTIONS (1)
  - Neoplasm malignant [Unknown]
